FAERS Safety Report 5537670-0 (Version None)
Quarter: 2007Q4

REPORT INFORMATION
  Report Type: 
  Country: None (occurrence: None)
  Receive Date: 20071207
  Receipt Date: 20071128
  Transmission Date: 20080405
  Serious: Yes (Other)
  Sender: FDA-Public Use
  Company Number: DE-ROCHE-528456

PATIENT
  Age: 51 Year
  Sex: Male
  Weight: 78 kg

DRUGS (2)
  1. PEG-INTERFERON A-2A (RO 25-8310) [Suspect]
     Route: 058
     Dates: start: 20070216, end: 20071017
  2. RIBAVIRIN [Concomitant]
     Dates: start: 20070201, end: 20071017

REACTIONS (2)
  - ALVEOLITIS [None]
  - DYSPNOEA [None]
